FAERS Safety Report 19224419 (Version 1)
Quarter: 2021Q2

REPORT INFORMATION
  Report Type: Spontaneous
  Country: US (occurrence: US)
  Receive Date: 20210506
  Receipt Date: 20210506
  Transmission Date: 20210717
  Serious: No
  Sender: FDA-Public Use
  Company Number: US-UNITED THERAPEUTICS-UNT-2021-008001

PATIENT
  Age: 37 Year
  Sex: Female

DRUGS (3)
  1. REMODULIN [Suspect]
     Active Substance: TREPROSTINIL
     Indication: PULMONARY ARTERIAL HYPERTENSION
     Dosage: UNK, CONTINUING
     Route: 058
     Dates: start: 202104
  2. REMODULIN [Suspect]
     Active Substance: TREPROSTINIL
     Dosage: 0.0046 ?G/KG, CONTINUING
     Route: 058
     Dates: start: 202104
  3. AMBRISENTAN [Concomitant]
     Active Substance: AMBRISENTAN
     Indication: PULMONARY ARTERIAL HYPERTENSION
     Dosage: 5 MG, QD
     Route: 065
     Dates: start: 202104

REACTIONS (9)
  - Grimacing [Unknown]
  - Infusion site bruising [Unknown]
  - Headache [Unknown]
  - Infusion site pain [Unknown]
  - Infusion site erythema [Unknown]
  - Pain in jaw [Unknown]
  - Flushing [Unknown]
  - Infusion site swelling [Unknown]
  - Discomfort [Unknown]

NARRATIVE: CASE EVENT DATE: 202104
